FAERS Safety Report 8853956 (Version 1)
Quarter: 2012Q4

REPORT INFORMATION
  Report Type: 
  Country: US (occurrence: US)
  Receive Date: 20121022
  Receipt Date: 20121022
  Transmission Date: 20130627
  Serious: Yes (Hospitalization)
  Sender: FDA-Public Use
  Company Number: US-BAYER-2012-106951

PATIENT
  Age: 24 Year
  Sex: Female
  Weight: 53.06 kg

DRUGS (10)
  1. YASMIN [Suspect]
  2. YAZ [Suspect]
  3. IBUPROFEN [Concomitant]
  4. XANAX [Concomitant]
  5. VICODIN [Concomitant]
  6. PERCOCET [Concomitant]
     Indication: PAIN
     Dosage: UNK UNK, PRN
  7. ATIVAN [Concomitant]
     Indication: SLEEP DISORDER
     Dosage: 1 mg, at bedtime as needed
  8. ASPIRIN [Concomitant]
     Dosage: 325 mg, daily
  9. FERROUS SULFATE [Concomitant]
     Dosage: 325 daily.
  10. VITAMIN C [Concomitant]
     Dosage: 500 mg, daily

REACTIONS (1)
  - Deep vein thrombosis [None]
